FAERS Safety Report 15848777 (Version 6)
Quarter: 2019Q2

REPORT INFORMATION
  Report Type: Spontaneous
  Country: JP (occurrence: JP)
  Receive Date: 20190121
  Receipt Date: 20190403
  Transmission Date: 20190711
  Serious: Yes (Hospitalization, Other)
  Sender: FDA-Public Use
  Company Number: JP-ABBVIE-19K-087-2629348-00

PATIENT
  Age: 83 Year
  Sex: Male
  Weight: 57 kg

DRUGS (6)
  1. MAVIRET [Suspect]
     Active Substance: GLECAPREVIR\PIBRENTASVIR
     Indication: CHRONIC HEPATITIS C
     Route: 048
     Dates: start: 20181213
  2. L-LEUCINE [Concomitant]
     Indication: HEPATIC CIRRHOSIS
     Route: 048
  3. BETAMETHASONE BUTYRATE PROPIONATE [Concomitant]
     Active Substance: BETAMETHASONE BUTYRATE PROPIONATE
     Indication: PRURITUS
     Dosage: 1 OR 2 TIMES/DAY
     Route: 061
  4. L-VALINE GRANULES [Concomitant]
     Indication: HEPATIC CIRRHOSIS
     Route: 048
  5. SILODOSIN. [Concomitant]
     Active Substance: SILODOSIN
     Indication: BENIGN PROSTATIC HYPERPLASIA
     Route: 048
  6. L-ISOLEUCINE [Concomitant]
     Indication: HEPATIC CIRRHOSIS
     Route: 048

REACTIONS (10)
  - Dehydration [Unknown]
  - Pyrexia [Recovering/Resolving]
  - Altered state of consciousness [Unknown]
  - Influenza [Recovering/Resolving]
  - Disorientation [Recovering/Resolving]
  - Dementia [Recovering/Resolving]
  - Oropharyngeal pain [Unknown]
  - Disorganised speech [Not Recovered/Not Resolved]
  - Renal impairment [Unknown]
  - Hallucination [Not Recovered/Not Resolved]

NARRATIVE: CASE EVENT DATE: 20190111
